FAERS Safety Report 11468018 (Version 1)
Quarter: 2015Q3

REPORT INFORMATION
  Report Type: Spontaneous
  Country: US (occurrence: US)
  Receive Date: 20150908
  Receipt Date: 20150908
  Transmission Date: 20151125
  Serious: No
  Sender: FDA-Public Use
  Company Number: US-PFIZER INC-2015287624

PATIENT
  Age: 1 Year
  Sex: Female

DRUGS (1)
  1. CHAPSTICK SUN DEFENSE [Suspect]
     Active Substance: OCTINOXATE\OCTISALATE\OCTOCRYLENE\OXYBENZONE\PETROLATUM
     Dosage: UNK
     Dates: start: 20150826

REACTIONS (3)
  - Diarrhoea [Unknown]
  - Dermatitis diaper [Unknown]
  - Accidental exposure to product by child [Recovered/Resolved]

NARRATIVE: CASE EVENT DATE: 20150826
